FAERS Safety Report 20349973 (Version 4)
Quarter: 2022Q1

REPORT INFORMATION
  Report Type: Report from Study
  Country: CA (occurrence: CA)
  Receive Date: 20220119
  Receipt Date: 20220228
  Transmission Date: 20220423
  Serious: Yes (Hospitalization, Other)
  Sender: FDA-Public Use
  Company Number: CA-HLS-202200055

PATIENT
  Age: 65 Year
  Sex: Female

DRUGS (2)
  1. CLOZARIL [Suspect]
     Active Substance: CLOZAPINE
     Indication: Product used for unknown indication
     Route: 048
     Dates: start: 20180531
  2. CARBOPLATIN-TAXOL [Concomitant]
     Indication: Ovarian cancer
     Route: 065

REACTIONS (4)
  - Neutropenia [Unknown]
  - COVID-19 [Unknown]
  - Ovarian cancer [Unknown]
  - Leukopenia [Unknown]

NARRATIVE: CASE EVENT DATE: 20220220
